FAERS Safety Report 10019892 (Version 2)
Quarter: 2014Q1

REPORT INFORMATION
  Report Type: Spontaneous
  Country: US (occurrence: US)
  Receive Date: 20140318
  Receipt Date: 20140318
  Transmission Date: 20141002
  Serious: No
  Sender: FDA-Public Use
  Company Number: US-GALDERMA-US14000278

PATIENT
  Age: 64 Year
  Sex: Male

DRUGS (8)
  1. MIRVASO (BRIMONIDINE) TOPICAL GEL, 0.33% [Suspect]
     Indication: ROSACEA
     Dosage: 0.33%
     Route: 061
     Dates: start: 20131210, end: 20131213
  2. METROGEL  (METRONIDAZOLE) GEL, 1% [Concomitant]
     Indication: ROSACEA
     Route: 061
  3. LISINOPRIL [Concomitant]
     Route: 048
  4. SINGULAIR (MONTELUKAST) [Concomitant]
     Route: 048
  5. OMEPRAZOLE [Concomitant]
     Route: 048
  6. ASPIRIN [Concomitant]
     Route: 048
  7. HYDROCHLOROTHIAZIDE [Concomitant]
     Route: 048
  8. ALBUTEROL [Concomitant]

REACTIONS (2)
  - Condition aggravated [Recovered/Resolved]
  - Erythema [Recovered/Resolved]
